FAERS Safety Report 19192643 (Version 1)
Quarter: 2021Q2

REPORT INFORMATION
  Report Type: Spontaneous
  Country: CH (occurrence: CH)
  Receive Date: 20210429
  Receipt Date: 20210429
  Transmission Date: 20210717
  Serious: Yes (Death, Hospitalization, Other)
  Sender: FDA-Public Use
  Company Number: CH-JAZZ-2021-CH-007565

PATIENT
  Age: 60 Year
  Sex: Female

DRUGS (1)
  1. DEFITELIO [Suspect]
     Active Substance: DEFIBROTIDE SODIUM
     Indication: VENOOCCLUSIVE DISEASE
     Dosage: UNKNOWN DOSE
     Route: 042

REACTIONS (4)
  - Respiratory distress [Recovering/Resolving]
  - Pulmonary alveolar haemorrhage [Unknown]
  - Thrombotic microangiopathy [Unknown]
  - Infection [Fatal]
